FAERS Safety Report 6481006-8 (Version None)
Quarter: 2009Q4

REPORT INFORMATION
  Report Type: 
  Country: None (occurrence: None)
  Receive Date: 20091208
  Receipt Date: 20091127
  Transmission Date: 20100525
  Serious: Yes (Other)
  Sender: FDA-Public Use
  Company Number: PHHY2009GB50115

PATIENT
  Sex: Male

DRUGS (11)
  1. CLOZARIL [Suspect]
     Dosage: UNK
     Route: 065
     Dates: start: 19980928
  2. NULYTELY [Concomitant]
     Dosage: 1 SACHET, MANE
  3. LANSOPRAZOLE [Concomitant]
     Dosage: 30 MG/DAY
     Route: 065
  4. QUETIAPINE [Concomitant]
     Dosage: 200 MG, BID
  5. ASPIRIN [Concomitant]
     Dosage: 75 MG, MANE
     Route: 065
  6. SERTRALINE HCL [Concomitant]
     Dosage: 150 MG MANE
     Route: 065
  7. METFORMIN HCL [Concomitant]
     Dosage: 1 G, BD
  8. MAXEPA [Concomitant]
     Dosage: 2 OF BD
     Route: 065
  9. SIMVASTATIN [Concomitant]
     Dosage: 80 MG NIGHT
     Route: 065
  10. FERROUS SULFATE TAB [Concomitant]
     Dosage: 200 MG/DAY
     Route: 065
  11. GLICLAZIDE [Concomitant]
     Dosage: 160 MG, BD

REACTIONS (1)
  - URINARY TRACT INFECTION [None]
